FAERS Safety Report 16352457 (Version 1)
Quarter: 2019Q2

REPORT INFORMATION
  Report Type: Spontaneous
  Country: NO (occurrence: NO)
  Receive Date: 20190524
  Receipt Date: 20190524
  Transmission Date: 20190711
  Serious: Yes (Other)
  Sender: FDA-Public Use
  Company Number: NO-BAYER-2019-096371

PATIENT
  Sex: Male

DRUGS (1)
  1. XOFIGO [Suspect]
     Active Substance: RADIUM RA-223 DICHLORIDE
     Indication: OSTEOSARCOMA
     Route: 013

REACTIONS (4)
  - Off label use [None]
  - Product use issue [None]
  - Product use in unapproved indication [None]
  - Osteosarcoma recurrent [None]
